FAERS Safety Report 5346725-5 (Version None)
Quarter: 2007Q2

REPORT INFORMATION
  Report Type: 
  Country: None (occurrence: None)
  Receive Date: 20070502
  Receipt Date: 20070302
  Transmission Date: 20071010
  Serious: Yes (Disabling)
  Sender: FDA-Public Use
  Company Number: 485361

PATIENT
  Age: 67 Year
  Sex: Female
  Weight: 56.7 kg

DRUGS (10)
  1. BONIVA [Suspect]
     Indication: OSTEOPOROSIS
     Dosage: 3MG, 1 PER 3 MONTH; INTRAVENOUS
     Route: 042
     Dates: start: 20061115, end: 20070101
  2. ADVAIR DISKUS 100/50 [Concomitant]
  3. THEO-DUR [Concomitant]
  4. PREDNISONE TAB [Concomitant]
  5. SINGULAIR [Concomitant]
  6. DEMADEX [Concomitant]
  7. K-TABS (POTASSIUM CHLORIDE) [Concomitant]
  8. MAGNESIUM OXIDE (MAGNESIUM OXIDE) [Concomitant]
  9. ZYRTEC [Concomitant]
  10. SPIRIVA [Concomitant]

REACTIONS (4)
  - ERYTHEMA [None]
  - FALL [None]
  - MUSCULAR WEAKNESS [None]
  - PRURITUS [None]
